FAERS Safety Report 8796895 (Version 5)
Quarter: 2013Q3

REPORT INFORMATION
  Report Type: Spontaneous
  Country: JP (occurrence: JP)
  Receive Date: 20120917
  Receipt Date: 20130723
  Transmission Date: 20140515
  Serious: Yes (Other)
  Sender: FDA-Public Use
  Company Number: JP-PFIZER INC-2012227526

PATIENT
  Age: 89 Year
  Sex: Female
  Weight: 35 kg

DRUGS (6)
  1. DALACIN [Suspect]
     Indication: STAPHYLOCOCCAL INFECTION
     Dosage: UNK
     Route: 042
  2. VANCOMYCIN HCL [Suspect]
     Indication: STAPHYLOCOCCAL INFECTION
     Dosage: UNK
     Route: 042
  3. CLARITHROMYCIN [Suspect]
     Dosage: UNK
  4. PIPERACILLIN/TAZOBACTAM [Suspect]
     Dosage: UNK
     Route: 042
  5. MEROPENEM [Suspect]
     Indication: STAPHYLOCOCCAL INFECTION
     Dosage: UNK
     Route: 042
  6. FUROSEMIDE [Suspect]
     Dosage: UNK

REACTIONS (1)
  - Renal impairment [Unknown]
